FAERS Safety Report 10098624 (Version 3)
Quarter: 2014Q2

REPORT INFORMATION
  Report Type: Spontaneous
  Country: GB (occurrence: GB)
  Receive Date: 20140423
  Receipt Date: 20140430
  Transmission Date: 20141212
  Serious: Yes (Life-Threatening, Hospitalization, Other)
  Sender: FDA-Public Use
  Company Number: GB-PFIZER INC-2014107791

PATIENT
  Age: 32 Year
  Sex: Male

DRUGS (3)
  1. SERTRALINE HCL [Suspect]
     Indication: DEPRESSION
     Dosage: 200 MG, DAILY
     Route: 048
  2. SERTRALINE HCL [Suspect]
     Dosage: 50 MG, UNK
     Route: 048
     Dates: start: 201310
  3. CLOZARIL [Suspect]
     Indication: SCHIZOPHRENIA
     Dosage: 400 MG, UNK
     Route: 048
     Dates: start: 20040624

REACTIONS (4)
  - Type 2 diabetes mellitus [Unknown]
  - Haemoglobin decreased [Not Recovered/Not Resolved]
  - Gastrointestinal haemorrhage [Recovered/Resolved]
  - Obsessive-compulsive disorder [Unknown]
